FAERS Safety Report 8723957 (Version 2)
Quarter: 2012Q4

REPORT INFORMATION
  Report Type: Spontaneous
  Country: None (occurrence: None)
  Receive Date: 20120727
  Receipt Date: 20121009
  Transmission Date: 20130627
  Serious: Yes (Other)
  Sender: FDA-Public Use
  Company Number: AUR-APL-2012-03135

PATIENT
  Age: 72 Year
  Sex: Female
  Weight: 61.3 kg

DRUGS (6)
  1. LAMOTRIGINE [Suspect]
     Indication: DRUG USE FOR UNKNOWN INDICATION
     Dates: start: 20120427, end: 20120710
  2. ASPIRIN [Concomitant]
  3. DIPROBASE (DIPROBASE /01210201/) [Concomitant]
  4. DIPYRIDAMOLE [Concomitant]
  5. INDAPAMIDE [Concomitant]
  6. ZEROBASE (PARAFFIN) [Concomitant]

REACTIONS (1)
  - Toxic epidermal necrolysis [None]
